FAERS Safety Report 10475015 (Version 1)
Quarter: 2014Q3

REPORT INFORMATION
  Report Type: Spontaneous
  Country: SE (occurrence: SE)
  Receive Date: 20140925
  Receipt Date: 20140925
  Transmission Date: 20150326
  Serious: Yes (Death)
  Sender: FDA-Public Use
  Company Number: SE-BRISTOL-MYERS SQUIBB COMPANY-21413539

PATIENT
  Age: 88 Year
  Sex: Female

DRUGS (15)
  1. BISOPROLOL [Concomitant]
     Active Substance: BISOPROLOL
  2. ELIQUIS [Suspect]
     Active Substance: APIXABAN
     Indication: ATRIAL FIBRILLATION
     Dosage: 2.5MG FILMCOATED TAB
     Route: 048
     Dates: start: 20140821, end: 20140827
  3. ALLOPURINOL. [Concomitant]
     Active Substance: ALLOPURINOL
  4. ISOPHANE INSULIN [Concomitant]
     Active Substance: INSULIN NOS
     Dosage: PENFILL 100 ILU/MI SUSPENSION FOR?INJECTION
  5. SPIRONOLACTONE. [Concomitant]
     Active Substance: SPIRONOLACTONE
     Dosage: SPIRONOLACTONE ORION 50 MG TABLET
  6. OESTRIOL [Concomitant]
     Dosage: QESTRIOL MYLAN 1 MG TABLET
  7. PREDNISOLONE. [Concomitant]
     Active Substance: PREDNISOLONE
     Dosage: PREDNISOLON ALTERNOVA 2.5 MG TABLET
  8. ALVEDON [Concomitant]
     Active Substance: ACETAMINOPHEN
     Dosage: MODIFIED RELEASE?TABLETS
  9. XALATAN [Concomitant]
     Active Substance: LATANOPROST
     Dosage: 1DF:50 MICROGRAM/ML EYE DROPS, SOLUTION
  10. FURIX [Concomitant]
     Active Substance: FUROSEMIDE
     Dosage: 40 MG TABLET
  11. EUSAPRIM FORTE [Concomitant]
     Active Substance: SULFAMETHOXAZOLE\TRIMETHOPRIM
     Dosage: 1DF:160 MG/800 MG TABLET
  12. GLYCERYL TRINITRATE [Concomitant]
     Active Substance: NITROGLYCERIN
  13. OMEPRAZOL [Concomitant]
     Active Substance: OMEPRAZOLE
  14. CANODERM [Concomitant]
  15. CANODERM [Concomitant]
     Dosage: 5% CREAM

REACTIONS (2)
  - Haemoptysis [Fatal]
  - Pulmonary oedema [Fatal]

NARRATIVE: CASE EVENT DATE: 20140827
